FAERS Safety Report 5144729-9 (Version None)
Quarter: 2006Q4

REPORT INFORMATION
  Report Type: 
  Country: None (occurrence: None)
  Receive Date: 20061106
  Receipt Date: 20060706
  Transmission Date: 20070319
  Serious: Yes (Hospitalization)
  Sender: FDA-Public Use
  Company Number: US-ELI_LILLY_AND_COMPANY-US200607000878

PATIENT
  Age: 55 Year
  Sex: Male

DRUGS (6)
  1. CYMBALTA [Suspect]
     Indication: DEPRESSION
     Dates: start: 20051101, end: 20060501
  2. AVAPRO [Concomitant]
  3. TOPROL-XL [Concomitant]
  4. CLONAZEPAM [Concomitant]
  5. COUMADIN [Concomitant]
  6. PREGABALIN [Concomitant]

REACTIONS (9)
  - ASTHENIA [None]
  - DIARRHOEA [None]
  - DRUG WITHDRAWAL SYNDROME [None]
  - GENERAL PHYSICAL HEALTH DETERIORATION [None]
  - HALLUCINATION, VISUAL [None]
  - IMPAIRED DRIVING ABILITY [None]
  - MALAISE [None]
  - PAIN [None]
  - VOMITING [None]
